FAERS Safety Report 25366548 (Version 1)
Quarter: 2025Q2

REPORT INFORMATION
  Report Type: Spontaneous
  Country: AU (occurrence: AU)
  Receive Date: 20250528
  Receipt Date: 20250528
  Transmission Date: 20250716
  Serious: No
  Sender: ASTELLAS
  Company Number: AU-ASTELLAS-2025-AER-028380

PATIENT
  Age: 53 Year
  Sex: Female

DRUGS (1)
  1. VEOZAH [Suspect]
     Active Substance: FEZOLINETANT
     Indication: Menopausal symptoms
     Route: 048
     Dates: start: 2024, end: 2025

REACTIONS (1)
  - Hepatic enzyme increased [Unknown]
